FAERS Safety Report 24824352 (Version 2)
Quarter: 2025Q2

REPORT INFORMATION
  Report Type: Spontaneous
  Country: US (occurrence: US)
  Receive Date: 20250109
  Receipt Date: 20250528
  Transmission Date: 20250717
  Serious: Yes (Other)
  Sender: BRISTOL-MYERS SQUIBB COMPANY
  Company Number: US-BRISTOL-MYERS SQUIBB COMPANY-2025-003062

PATIENT
  Age: 62 Year
  Sex: Male

DRUGS (3)
  1. LENALIDOMIDE [Suspect]
     Active Substance: LENALIDOMIDE
     Indication: Plasma cell myeloma
     Route: 048
     Dates: start: 20240921
  2. LENALIDOMIDE [Suspect]
     Active Substance: LENALIDOMIDE
     Dosage: D1-21 EVERY 28 DAYS.
     Route: 048
     Dates: start: 20240921
  3. ACYCLOVIR [Concomitant]
     Active Substance: ACYCLOVIR
     Indication: Product used for unknown indication
     Route: 048
     Dates: start: 20230407, end: 20250107

REACTIONS (5)
  - Viral infection [Not Recovered/Not Resolved]
  - Dizziness [Recovering/Resolving]
  - Neuropathy peripheral [Not Recovered/Not Resolved]
  - Head injury [Unknown]
  - Tenderness [Unknown]

NARRATIVE: CASE EVENT DATE: 20241101
